FAERS Safety Report 12250157 (Version 2)
Quarter: 2016Q4

REPORT INFORMATION
  Report Type: Spontaneous
  Country: US (occurrence: US)
  Receive Date: 20160408
  Receipt Date: 20161111
  Transmission Date: 20170207
  Serious: Yes (Hospitalization, Other)
  Sender: FDA-Public Use
  Company Number: US-COVIS PHARMA S.A.R.L.-2016COV00004

PATIENT
  Age: 53 Year
  Sex: Female
  Weight: 49.89 kg

DRUGS (8)
  1. RYTHMOL [Suspect]
     Active Substance: PROPAFENONE HYDROCHLORIDE
     Indication: HEART RATE INCREASED
  2. BETAPACE [Suspect]
     Active Substance: SOTALOL HYDROCHLORIDE
     Indication: HEART RATE INCREASED
  3. AMIODARONE [Suspect]
     Active Substance: AMIODARONE
     Indication: HEART RATE INCREASED
  4. COUMADIN [Concomitant]
     Active Substance: WARFARIN SODIUM
  5. LANOXIN [Concomitant]
     Active Substance: DIGOXIN
  6. PACERONE [Suspect]
     Active Substance: AMIODARONE HYDROCHLORIDE
  7. BETAPACE [Suspect]
     Active Substance: SOTALOL HYDROCHLORIDE
     Indication: ATRIAL FIBRILLATION
     Dosage: 1 DOSAGE UNITS, 1X/DAY
     Route: 048
     Dates: start: 1989
  8. QUINIDEX [Suspect]
     Active Substance: QUINIDINE SULFATE
     Indication: HEART RATE INCREASED

REACTIONS (3)
  - Heart rate increased [Recovered/Resolved]
  - Cardiac disorder [Unknown]
  - Drug ineffective [Unknown]

NARRATIVE: CASE EVENT DATE: 198912
